FAERS Safety Report 19241540 (Version 1)
Quarter: 2021Q2

REPORT INFORMATION
  Report Type: Spontaneous
  Country: US (occurrence: US)
  Receive Date: 20210511
  Receipt Date: 20210511
  Transmission Date: 20210717
  Serious: Yes (Life-Threatening, Hospitalization, Other)
  Sender: FDA-Public Use
  Company Number: US-TILLOMED LABORATORIES LTD.-2021-EPL-001511

PATIENT
  Age: 27 Year
  Sex: Male
  Weight: 91 kg

DRUGS (27)
  1. SALBUTAMOL [Concomitant]
     Active Substance: ALBUTEROL
     Dosage: AS NEEDED
     Route: 055
  2. FLUVOXAMINE MALEATE. [Suspect]
     Active Substance: FLUVOXAMINE MALEATE
     Indication: PRODUCT USED FOR UNKNOWN INDICATION
     Dosage: 150 MILLIGRAM
  3. HALOPERIDOL. [Concomitant]
     Active Substance: HALOPERIDOL
     Dosage: 5 MILLIGRAM
  4. LAMOTRIGINE. [Concomitant]
     Active Substance: LAMOTRIGINE
     Dosage: 200 MILLIGRAM
  5. ZIPRASIDONE. [Concomitant]
     Active Substance: ZIPRASIDONE
     Dosage: 60 MILLIGRAM
  6. SEVOFLURANE. [Suspect]
     Active Substance: SEVOFLURANE
     Indication: GENERAL ANAESTHESIA
     Dosage: 1.9 %
  7. ALTHAEA OFFICINALIS [Concomitant]
     Dosage: EVERY NIGHT AT BEDTIME
  8. GLYCOPYRROLATE. [Concomitant]
     Active Substance: GLYCOPYRROLATE
     Dosage: 100 MICROGRAM,ADDITIONAL
     Route: 040
  9. MIDAZOLAM. [Concomitant]
     Active Substance: MIDAZOLAM
     Dosage: 1 MILLIGRAM
     Route: 040
  10. OLANZAPINE. [Concomitant]
     Active Substance: OLANZAPINE
     Dosage: 10 MILLIGRAM
  11. FENTANYL. [Suspect]
     Active Substance: FENTANYL
     Indication: PRODUCT USED FOR UNKNOWN INDICATION
     Dosage: 50 MICROGRAM
     Route: 040
  12. PROPOFOL. [Suspect]
     Active Substance: PROPOFOL
     Dosage: 50 MILLIGRAM,ADDITIONA DOSE
     Route: 040
  13. CIMICIFUGA RACEMOSA [Concomitant]
     Active Substance: BLACK COHOSH
     Dosage: EVERY NIGHT AT BEDTIME
  14. MELATONIN [Concomitant]
     Active Substance: MELATONIN
     Dosage: 3 MILLIGRAM,EVERY NIGHT AT BEDTIME
  15. KETAMINE [Suspect]
     Active Substance: KETAMINE
     Indication: GENERAL ANAESTHESIA
     Dosage: 300 MILLIGRAM
     Route: 030
  16. SUXAMETHONIUM [Suspect]
     Active Substance: SUCCINYLCHOLINE
     Indication: PARALYSIS
     Route: 042
  17. OXYGEN. [Concomitant]
     Active Substance: OXYGEN
     Dosage: 12 LITER,VIA THE ANESTHETIC FACEMASK
  18. JUNIPERUS OXYCEDRUS [Concomitant]
     Dosage: EVERY NIGHT AT BEDTIME
  19. LACOSAMIDE. [Concomitant]
     Active Substance: LACOSAMIDE
     Dosage: 100 MILLIGRAM
  20. PROPRANOLOL HYDROCHLORIDE. [Interacting]
     Active Substance: PROPRANOLOL HYDROCHLORIDE
     Indication: ABNORMAL BEHAVIOUR
     Dosage: 20 MILLIGRAM
  21. PROPOFOL. [Suspect]
     Active Substance: PROPOFOL
     Indication: GENERAL ANAESTHESIA
     Dosage: 100 MILLIGRAM
     Route: 040
  22. SUXAMETHONIUM [Suspect]
     Active Substance: SUCCINYLCHOLINE
     Dosage: 120 MILLIGRAM
     Route: 042
  23. GUANFACINE. [Interacting]
     Active Substance: GUANFACINE
     Indication: ABNORMAL BEHAVIOUR
     Dosage: 1 MILLIGRAM,EXTENDED?RELEASE
  24. CANNABIS SATIVA [Concomitant]
     Active Substance: CANNABIS SATIVA FLOWERING TOP
     Dosage: EVERY NIGHT AT BEDTIME
  25. GLYCOPYRROLATE. [Concomitant]
     Active Substance: GLYCOPYRROLATE
     Dosage: 100 MICROGRAM
     Route: 040
  26. PAROXETINE. [Concomitant]
     Active Substance: PAROXETINE
     Dosage: 40 MILLIGRAM,EVERY NIGHT AT BEDTIME
  27. ZONISAMIDE. [Concomitant]
     Active Substance: ZONISAMIDE
     Dosage: 100 MILLIGRAM

REACTIONS (6)
  - Hypotension [Recovered/Resolved]
  - Pulseless electrical activity [Recovered/Resolved]
  - Bradycardia [Recovered/Resolved]
  - Overdose [Recovered/Resolved]
  - Drug interaction [Recovered/Resolved]
  - Cardiac arrest [Recovered/Resolved]
